FAERS Safety Report 21963513 (Version 1)
Quarter: 2023Q1

REPORT INFORMATION
  Report Type: Report from Study
  Country: BR (occurrence: BR)
  Receive Date: 20230207
  Receipt Date: 20230207
  Transmission Date: 20230417
  Serious: Yes (Disabling)
  Sender: FDA-Public Use
  Company Number: BR-ABBVIE-4293834

PATIENT
  Age: 37 Year
  Sex: Female
  Weight: 81 kg

DRUGS (2)
  1. RINVOQ [Suspect]
     Active Substance: UPADACITINIB
     Indication: Rheumatoid arthritis
     Route: 048
     Dates: start: 20211118, end: 202212
  2. Arthro [Concomitant]
     Indication: Osteoarthritis
     Route: 048
     Dates: start: 2020

REACTIONS (4)
  - Osteoarthritis [Not Recovered/Not Resolved]
  - Obesity [Unknown]
  - Loss of personal independence in daily activities [Unknown]
  - Joint lock [Unknown]

NARRATIVE: CASE EVENT DATE: 20230101
